FAERS Safety Report 14519035 (Version 6)
Quarter: 2018Q2

REPORT INFORMATION
  Report Type: Report from Study
  Country: CA (occurrence: CA)
  Receive Date: 20180212
  Receipt Date: 20180423
  Transmission Date: 20180711
  Serious: Yes (Other)
  Sender: FDA-Public Use
  Company Number: CA-JNJFOC-20180209507

PATIENT
  Age: 52 Year
  Sex: Male

DRUGS (2)
  1. STELARA [Suspect]
     Active Substance: USTEKINUMAB
     Indication: CROHN^S DISEASE
     Route: 058
  2. STELARA [Suspect]
     Active Substance: USTEKINUMAB
     Indication: CROHN^S DISEASE
     Route: 058
     Dates: start: 20170808

REACTIONS (8)
  - Postoperative wound infection [Not Recovered/Not Resolved]
  - Product use issue [Unknown]
  - General physical health deterioration [Unknown]
  - Abscess [Unknown]
  - Abdominal pain [Unknown]
  - Frequent bowel movements [Unknown]
  - Off label use [Unknown]
  - Infected fistula [Unknown]

NARRATIVE: CASE EVENT DATE: 20170808
